FAERS Safety Report 14726431 (Version 2)
Quarter: 2018Q2

REPORT INFORMATION
  Report Type: Spontaneous
  Country: CN (occurrence: CN)
  Receive Date: 20180406
  Receipt Date: 20180410
  Transmission Date: 20180711
  Serious: Yes (Other)
  Sender: FDA-Public Use
  Company Number: CN-009507513-1803CHN012028

PATIENT

DRUGS (1)
  1. TIENAM [Suspect]
     Active Substance: CILASTATIN SODIUM\IMIPENEM
     Dosage: UNK

REACTIONS (5)
  - Delirium [Unknown]
  - Abnormal behaviour [Unknown]
  - Vomiting [Unknown]
  - Screaming [Unknown]
  - Gastrointestinal disorder [Unknown]
